FAERS Safety Report 19895497 (Version 1)
Quarter: 2021Q3

REPORT INFORMATION
  Report Type: Spontaneous
  Country: US (occurrence: US)
  Receive Date: 20210928
  Receipt Date: 20210928
  Transmission Date: 20211014
  Serious: Yes (Hospitalization)
  Sender: FDA-Public Use
  Company Number: None

PATIENT
  Age: 68 Year
  Sex: Male

DRUGS (1)
  1. CAPECITABINE TAB 150MG [Suspect]
     Active Substance: CAPECITABINE
     Indication: COLON CANCER
     Route: 048
     Dates: end: 202107

REACTIONS (6)
  - Clostridium difficile infection [None]
  - Adverse drug reaction [None]
  - Weight decreased [None]
  - Neuropathy peripheral [None]
  - Dehydration [None]
  - Ileal ulcer [None]

NARRATIVE: CASE EVENT DATE: 20210928
